FAERS Safety Report 5831666-7 (Version None)
Quarter: 2008Q3

REPORT INFORMATION
  Report Type: 
  Country: None (occurrence: None)
  Receive Date: 20080730
  Receipt Date: 20080717
  Transmission Date: 20090109
  Serious: Yes (Other)
  Sender: FDA-Public Use
  Company Number: 236755J08USA

PATIENT
  Age: 48 Year
  Sex: Male
  Weight: 64.8644 kg

DRUGS (6)
  1. REBIF [Suspect]
     Indication: MULTIPLE SCLEROSIS
     Dosage: 44 MCG, 3 IN 1 WEEKS, SUBCUTANEOUS
     Route: 058
     Dates: start: 20080403
  2. CYMBALTA [Concomitant]
  3. KLONOPIN [Concomitant]
  4. DURAGESIC PATCH (FENTANYL /00174601/) [Concomitant]
  5. TRAZODONE HCL [Concomitant]
  6. NEURONTIN [Concomitant]

REACTIONS (1)
  - BENIGN MIDDLE EAR NEOPLASM [None]
